FAERS Safety Report 12412897 (Version 3)
Quarter: 2018Q4

REPORT INFORMATION
  Report Type: Spontaneous
  Country: US (occurrence: US)
  Receive Date: 20160527
  Receipt Date: 20181210
  Transmission Date: 20190204
  Serious: No
  Sender: FDA-Public Use
  Company Number: US-PFIZER INC-2016277493

PATIENT
  Age: 68 Year
  Sex: Female

DRUGS (3)
  1. NEURONTIN [Suspect]
     Active Substance: GABAPENTIN
     Dosage: UNK
  2. CRESTOR [Suspect]
     Active Substance: ROSUVASTATIN CALCIUM
     Dosage: UNK
  3. PAXIL [Suspect]
     Active Substance: PAROXETINE HYDROCHLORIDE
     Dosage: UNK

REACTIONS (2)
  - Drug hypersensitivity [Unknown]
  - Swelling face [Unknown]
